FAERS Safety Report 5118794-9 (Version None)
Quarter: 2006Q3

REPORT INFORMATION
  Report Type: 
  Country: None (occurrence: None)
  Receive Date: 20060927
  Receipt Date: 20060918
  Transmission Date: 20061208
  Serious: Yes (Other)
  Sender: FDA-Public Use
  Company Number: 229994

PATIENT
  Age: 76 Year
  Sex: Female
  Weight: 62.1 kg

DRUGS (4)
  1. LUCENTIS [Suspect]
     Indication: MACULAR DEGENERATION
     Dosage: 0.5 MG, INTRAVITREAL
     Dates: start: 20060828
  2. LISINOPRIL [Concomitant]
  3. TOPROL-XL [Concomitant]
  4. GLUCOVANCE (GLYBURIDE, METFORMIN) [Concomitant]

REACTIONS (2)
  - BLOOD PRESSURE INCREASED [None]
  - DIZZINESS [None]
